FAERS Safety Report 6316943-8 (Version None)
Quarter: 2009Q3

REPORT INFORMATION
  Report Type: 
  Country: None (occurrence: None)
  Receive Date: 20090820
  Receipt Date: 20090810
  Transmission Date: 20100115
  Serious: Yes (Other)
  Sender: FDA-Public Use
  Company Number: PHEH2009US08149

PATIENT
  Sex: Female
  Weight: 69.841 kg

DRUGS (10)
  1. GLEEVEC [Suspect]
     Indication: CHRONIC MYELOID LEUKAEMIA
     Dosage: 300 MG DAILY
     Route: 048
     Dates: end: 20080101
  2. GLEEVEC [Suspect]
     Dosage: 400 MG DAILY
     Dates: start: 20080101
  3. ALEVE [Concomitant]
     Dosage: 220 MG PRN
     Dates: start: 20071025
  4. CALCIUM [Concomitant]
     Dosage: QD
     Dates: start: 20090225
  5. DIPROLENE [Concomitant]
     Dosage: PRN
     Dates: start: 20080218
  6. FISH OIL [Concomitant]
     Dosage: QD
     Dates: start: 20090225
  7. GLUCOSAMINE W/CHONDROITIN [Concomitant]
     Dosage: QD
     Dates: start: 20090225
  8. K-TAB [Concomitant]
     Dosage: 20 MG QD
     Dates: start: 20080218
  9. MULTI-VITAMINS [Concomitant]
     Dosage: QD
     Dates: start: 20090225
  10. SEROQUEL [Concomitant]
     Dosage: QHS
     Dates: start: 20090225

REACTIONS (9)
  - CLOSTRIDIUM DIFFICILE COLITIS [None]
  - DEPRESSION [None]
  - EYE IRRITATION [None]
  - FATIGUE [None]
  - HYPERSENSITIVITY [None]
  - INSOMNIA [None]
  - OEDEMA PERIPHERAL [None]
  - PERIORBITAL OEDEMA [None]
  - STRESS [None]
